FAERS Safety Report 6670323-4 (Version None)
Quarter: 2010Q2

REPORT INFORMATION
  Report Type: 
  Country: None (occurrence: None)
  Receive Date: 20100405
  Receipt Date: 20100320
  Transmission Date: 20101027
  Serious: Yes (Hospitalization)
  Sender: FDA-Public Use
  Company Number: AUR-APL-2010-00841

PATIENT
  Age: 42 Year
  Sex: Female

DRUGS (4)
  1. FLUOXETINE [Suspect]
     Indication: INTENTIONAL OVERDOSE
     Dosage: 40 TABS (800MG) X1
  2. SERTINDOLE 16MG TABLETS [Suspect]
     Indication: INTENTIONAL OVERDOSE
     Dosage: 112 TBS (792MG_ -X1
  3. ZOPICLONE [Suspect]
  4. LITHIUM [Concomitant]

REACTIONS (7)
  - BREATH SOUNDS ABNORMAL [None]
  - DRUG INTERACTION [None]
  - HEART RATE DECREASED [None]
  - LEUKOCYTOSIS [None]
  - MULTIPLE DRUG OVERDOSE [None]
  - SOMNOLENCE [None]
  - SUICIDAL IDEATION [None]
